FAERS Safety Report 8080714-5 (Version None)
Quarter: 2012Q1

REPORT INFORMATION
  Report Type: 
  Country: None (occurrence: None)
  Receive Date: 20120130
  Receipt Date: 20120119
  Transmission Date: 20120608
  Serious: Yes (Other)
  Sender: FDA-Public Use
  Company Number: CH-JNJFOC-20120109226

PATIENT
  Sex: Female

DRUGS (1)
  1. REMICADE [Suspect]
     Indication: PRODUCT USED FOR UNKNOWN INDICATION
     Route: 042
     Dates: start: 20100601, end: 20110109

REACTIONS (6)
  - DYSPNOEA [None]
  - INFUSION RELATED REACTION [None]
  - PALPITATIONS [None]
  - CHEST DISCOMFORT [None]
  - ERYTHEMA [None]
  - ANXIETY [None]
